FAERS Safety Report 14094673 (Version 1)
Quarter: 2017Q4

REPORT INFORMATION
  Report Type: Spontaneous
  Country: US (occurrence: US)
  Receive Date: 20171016
  Receipt Date: 20171016
  Transmission Date: 20180321
  Serious: No
  Sender: FDA-Public Use
  Company Number: US-AMGEN-USASP2017043539

PATIENT
  Age: 82 Year
  Sex: Female

DRUGS (1)
  1. PROLIA [Suspect]
     Active Substance: DENOSUMAB
     Indication: OSTEOPOROSIS POSTMENOPAUSAL
     Dosage: UNK
     Route: 065
     Dates: start: 201610

REACTIONS (12)
  - Dysstasia [Not Recovered/Not Resolved]
  - Urinary tract infection [Not Recovered/Not Resolved]
  - Swelling [Not Recovered/Not Resolved]
  - Walking aid user [Unknown]
  - Arthralgia [Not Recovered/Not Resolved]
  - Asthenia [Unknown]
  - Gait disturbance [Not Recovered/Not Resolved]
  - Malaise [Unknown]
  - Back pain [Unknown]
  - Pruritus [Not Recovered/Not Resolved]
  - Cystitis [Unknown]
  - Pain in extremity [Not Recovered/Not Resolved]
